FAERS Safety Report 12665022 (Version 1)
Quarter: 2016Q3

REPORT INFORMATION
  Report Type: Spontaneous
  Country: US (occurrence: US)
  Receive Date: 20160818
  Receipt Date: 20160818
  Transmission Date: 20161109
  Serious: No
  Sender: FDA-Public Use
  Company Number: US-WEST-WARD PHARMACEUTICALS CORP.-US-H14001-16-01637

PATIENT
  Sex: Male
  Weight: 10 kg

DRUGS (2)
  1. FLECAINIDE [Suspect]
     Active Substance: FLECAINIDE
     Indication: ATRIAL TACHYCARDIA
     Route: 065
  2. FLECAINIDE [Suspect]
     Active Substance: FLECAINIDE
     Route: 065

REACTIONS (10)
  - Product preparation error [Recovered/Resolved]
  - Circulatory collapse [Recovered/Resolved]
  - Cardiac arrest [Recovered/Resolved]
  - Sinus tachycardia [Recovered/Resolved]
  - Electrocardiogram QRS complex prolonged [Recovered/Resolved]
  - Ventricular tachycardia [Recovered/Resolved]
  - Accidental overdose [Recovered/Resolved]
  - Atrial tachycardia [Recovered/Resolved]
  - Incorrect dose administered [Recovered/Resolved]
  - Ventricular extrasystoles [Recovered/Resolved]
